FAERS Safety Report 8231907-5 (Version None)
Quarter: 2012Q1

REPORT INFORMATION
  Report Type: 
  Country: None (occurrence: None)
  Receive Date: 20120323
  Receipt Date: 20120309
  Transmission Date: 20120608
  Serious: Yes (Hospitalization, Other)
  Sender: FDA-Public Use
  Company Number: JP-ROCHE-1049149

PATIENT
  Sex: Female

DRUGS (3)
  1. COPEGUS [Suspect]
     Route: 048
     Dates: start: 20110114, end: 20120210
  2. PEGINTERFERON ALFA-2A [Suspect]
     Indication: HEPATITIS C
     Route: 058
     Dates: start: 20100909, end: 20120203
  3. COPEGUS [Suspect]
     Indication: HEPATITIS C
     Route: 048
     Dates: start: 20100909, end: 20110110

REACTIONS (8)
  - LARGE INTESTINAL HAEMORRHAGE [None]
  - PYREXIA [None]
  - ANAEMIA [None]
  - RASH [None]
  - STOMATITIS [None]
  - PRURITUS [None]
  - MELAENA [None]
  - SHOCK [None]
